FAERS Safety Report 9759782 (Version 1)
Quarter: 2013Q4

REPORT INFORMATION
  Report Type: Spontaneous
  Country: IN (occurrence: IN)
  Receive Date: 20131216
  Receipt Date: 20131216
  Transmission Date: 20140711
  Serious: Yes (Death, Other)
  Sender: FDA-Public Use
  Company Number: IN-009507513-1312IND005997

PATIENT
  Age: 66 Year
  Sex: 0

DRUGS (1)
  1. JANUMET [Suspect]
     Dosage: 50/500 MG ONCE A DAY
     Route: 048

REACTIONS (1)
  - Cerebrovascular accident [Fatal]
